FAERS Safety Report 10679068 (Version 1)
Quarter: 2014Q4

REPORT INFORMATION
  Report Type: Spontaneous
  Country: US (occurrence: US)
  Receive Date: 20141229
  Receipt Date: 20141229
  Transmission Date: 20150529
  Serious: No
  Sender: FDA-Public Use
  Company Number: US-PFIZER INC-2014352159

PATIENT
  Sex: Male

DRUGS (1)
  1. VIAGRA [Suspect]
     Active Substance: SILDENAFIL CITRATE
     Indication: SEXUAL DYSFUNCTION
     Dosage: UNK, AS NEEDED
     Dates: start: 20141215, end: 20141217

REACTIONS (5)
  - Skin discolouration [Unknown]
  - Skin odour abnormal [Unknown]
  - Painful erection [Unknown]
  - Penile adhesion [Unknown]
  - Product use issue [Unknown]

NARRATIVE: CASE EVENT DATE: 201412
